FAERS Safety Report 8854293 (Version 1)
Quarter: 2012Q4

REPORT INFORMATION
  Report Type: Spontaneous
  Country: US (occurrence: None)
  Receive Date: 20121019
  Receipt Date: 20121019
  Transmission Date: 20130627
  Serious: Yes (Other)
  Sender: FDA-Public Use
  Company Number: None

PATIENT
  Age: 24 Year
  Sex: Female
  Weight: 68.04 kg

DRUGS (2)
  1. VIIBRYD 40MG FOREST PARMACEUTICALS [Suspect]
     Indication: PANIC ATTACK
     Route: 048
     Dates: start: 20120618, end: 20121018
  2. VIIBRYD 40MG FOREST PARMACEUTICALS [Suspect]
     Indication: ANXIETY
     Route: 048
     Dates: start: 20120618, end: 20121018

REACTIONS (1)
  - Alopecia [None]
